FAERS Safety Report 7423155-3 (Version None)
Quarter: 2011Q2

REPORT INFORMATION
  Report Type: 
  Country: None (occurrence: None)
  Receive Date: 20110419
  Receipt Date: 20110415
  Transmission Date: 20111010
  Serious: Yes (Life-Threatening, Hospitalization)
  Sender: FDA-Public Use
  Company Number: DE-ASTRAZENECA-2011SE14240

PATIENT
  Age: 20399 Day
  Sex: Female
  Weight: 70 kg

DRUGS (5)
  1. LORAZEPAM [Suspect]
     Dosage: 10 MG
     Route: 048
     Dates: start: 20110312, end: 20110312
  2. LAMOTRIGINE [Concomitant]
     Indication: BIPOLAR DISORDER
     Route: 048
     Dates: start: 20100101
  3. SEROQUEL [Suspect]
     Indication: BIPOLAR DISORDER
     Route: 048
     Dates: start: 20090101
  4. TREVILOR RET [Concomitant]
     Indication: BIPOLAR DISORDER
     Route: 048
     Dates: start: 20080101
  5. SEROQUEL [Suspect]
     Dosage: TOOK 11.2 GM
     Route: 048
     Dates: start: 20110312, end: 20110312

REACTIONS (3)
  - SUICIDE ATTEMPT [None]
  - COMA [None]
  - INTENTIONAL OVERDOSE [None]
